FAERS Safety Report 8588145-6 (Version None)
Quarter: 2012Q3

REPORT INFORMATION
  Report Type: 
  Country: None (occurrence: None)
  Receive Date: 20120731
  Receipt Date: 20120716
  Transmission Date: 20120928
  Serious: Yes (Other)
  Sender: FDA-Public Use
  Company Number: TPA2012A00656

PATIENT
  Age: 58 Year
  Sex: Male

DRUGS (2)
  1. GLUCOTROL [Concomitant]
  2. ACTOS [Suspect]
     Indication: TYPE 2 DIABETES MELLITUS
     Dates: start: 20010501, end: 20110713

REACTIONS (2)
  - PROSTATE CANCER STAGE II [None]
  - BLADDER TRANSITIONAL CELL CARCINOMA [None]
